FAERS Safety Report 5508949-3 (Version None)
Quarter: 2007Q4

REPORT INFORMATION
  Report Type: 
  Country: None (occurrence: None)
  Receive Date: 20071031
  Receipt Date: 20070808
  Transmission Date: 20080405
  Serious: No
  Sender: FDA-Public Use
  Company Number: 2007PV033277

PATIENT
  Age: 66 Year
  Sex: Male

DRUGS (12)
  1. SYMLIN [Suspect]
     Indication: TYPE 1 DIABETES MELLITUS
     Dosage: SC
     Route: 058
     Dates: start: 20051111, end: 20070725
  2. LEVOTHYROXINE SODIUM [Concomitant]
  3. LANTUS [Concomitant]
  4. HUMALOG [Concomitant]
  5. HUMULIN 70/30 [Concomitant]
  6. PREDNISONE [Concomitant]
  7. TADALAFIL [Concomitant]
  8. LIPITOR [Concomitant]
  9. EZETIMIBE [Concomitant]
  10. AMBIEN [Concomitant]
  11. FLUDROCORTISONE ACETATE [Concomitant]
  12. SUTRALINE [Concomitant]

REACTIONS (1)
  - NAUSEA [None]
